FAERS Safety Report 15398352 (Version 1)
Quarter: 2018Q3

REPORT INFORMATION
  Report Type: Spontaneous
  Country: DE (occurrence: DE)
  Receive Date: 20180918
  Receipt Date: 20180918
  Transmission Date: 20181010
  Serious: Yes (Hospitalization, Other)
  Sender: FDA-Public Use
  Company Number: DE-PFIZER INC-2018369810

PATIENT
  Sex: Male
  Weight: 71 kg

DRUGS (5)
  1. CIPROFLOXACIN. [Concomitant]
     Active Substance: CIPROFLOXACIN
     Dosage: 500 MG, 1X/DAY
  2. CEFUROXIM [Concomitant]
     Active Substance: CEFUROXIME
     Dosage: 2 G, 1X/DAY
     Route: 042
  3. PACLITAXEL. [Concomitant]
     Active Substance: PACLITAXEL
     Indication: PANCREATIC CARCINOMA
     Dosage: 235 MG, 1X/DAY
     Route: 042
     Dates: start: 20180807
  4. FILGRASTIM [Suspect]
     Active Substance: FILGRASTIM
     Dosage: 48 MILLION IU, 1X/DAY
     Route: 042
     Dates: start: 20180802, end: 20180810
  5. GEMCITABINE [Concomitant]
     Active Substance: GEMCITABINE\GEMCITABINE HYDROCHLORIDE
     Indication: PANCREATIC CARCINOMA
     Dosage: 1900 MG, 1X/DAY
     Route: 042
     Dates: start: 20180807

REACTIONS (7)
  - Cholangitis [Not Recovered/Not Resolved]
  - Gamma-glutamyltransferase increased [Unknown]
  - Cholestasis [Not Recovered/Not Resolved]
  - Pyrexia [Unknown]
  - C-reactive protein increased [Unknown]
  - Alanine aminotransferase increased [Unknown]
  - Jaundice [Not Recovered/Not Resolved]

NARRATIVE: CASE EVENT DATE: 20180812
